FAERS Safety Report 4852776-7 (Version None)
Quarter: 2005Q4

REPORT INFORMATION
  Report Type: 
  Country: None (occurrence: None)
  Receive Date: 20051125
  Receipt Date: 20040915
  Transmission Date: 20060501
  Serious: Yes (Other)
  Sender: FDA-Public Use
  Company Number: 800126

PATIENT
  Age: 72 Year
  Sex: Male
  Weight: 97.5234 kg

DRUGS (16)
  1. DIANEAL [Suspect]
     Indication: PERITONEAL DIALYSIS
     Dosage: 12.5 L; IP
     Route: 033
     Dates: start: 20040301
  2. CONDROITIN [Concomitant]
  3. SODIUM BICARBONATE [Concomitant]
  4. FERREX [Concomitant]
  5. LABETALOL [Concomitant]
  6. LIPITOR [Concomitant]
  7. ASPIRIN [Concomitant]
  8. METAMUCIL [Concomitant]
  9. EPOGEN [Concomitant]
  10. HECTORAL [Concomitant]
  11. VIOXX [Concomitant]
  12. FALCEP [Concomitant]
  13. ZESTRIL [Concomitant]
  14. REMAGEL [Concomitant]
  15. NEPHROCAPS [Concomitant]
  16. BACTRIM [Concomitant]

REACTIONS (2)
  - KLEBSIELLA INFECTION [None]
  - PERITONITIS BACTERIAL [None]
